FAERS Safety Report 23034687 (Version 1)
Quarter: 2023Q4

REPORT INFORMATION
  Report Type: Spontaneous
  Country: US (occurrence: None)
  Receive Date: 20231005
  Receipt Date: 20231005
  Transmission Date: 20240109
  Serious: Yes (Hospitalization)
  Sender: FDA-Public Use
  Company Number: None

PATIENT
  Sex: Male

DRUGS (2)
  1. TESTOPEL [Suspect]
     Active Substance: TESTOSTERONE
     Indication: Testicular failure
     Dosage: OTHER FREQUENCY : EVERY 3 MONTH;?OTHER ROUTE : IMPLANT;?DISPENSE 10 PELLETS TO BE IMPLANTED EVERY 3
     Route: 050
     Dates: start: 20220408
  2. TESTOPEL [Suspect]
     Active Substance: TESTOSTERONE
     Dosage: OTHER QUANTITY : 10 PELLETS;?OTHER FREQUENCY : EVERY 3 MONTH;?OTHER ROUTE : IMPLANT;?
     Route: 050

REACTIONS (6)
  - Arrhythmia [None]
  - Atrial fibrillation [None]
  - Hypertension [None]
  - Peripheral swelling [None]
  - Joint swelling [None]
  - Haematoma infection [None]

NARRATIVE: CASE EVENT DATE: 20230701
